FAERS Safety Report 10227301 (Version 1)
Quarter: 2014Q2

REPORT INFORMATION
  Report Type: Spontaneous
  Country: US (occurrence: None)
  Receive Date: 20140606
  Receipt Date: 20140606
  Transmission Date: 20141212
  Serious: Yes (Other)
  Sender: FDA-Public Use
  Company Number: 2014AP003205

PATIENT
  Age: 69 Year
  Sex: Female
  Weight: 147 kg

DRUGS (4)
  1. ACYCLOVIR [Suspect]
     Indication: HERPES ZOSTER
     Route: 048
  2. KETOROLAC [Suspect]
     Indication: PRODUCT USED FOR UNKNOWN INDICATION
  3. ONDANSETRON (ONDANSETRON) [Concomitant]
  4. PREDNISONE (PREDNISONE) [Concomitant]

REACTIONS (11)
  - Renal failure acute [None]
  - Neurotoxicity [None]
  - Nausea [None]
  - Dizziness [None]
  - Rash [None]
  - Confusional state [None]
  - Aphasia [None]
  - Hallucination, visual [None]
  - Dysphemia [None]
  - Brain scan abnormal [None]
  - Leukocytosis [None]
